FAERS Safety Report 6794061-2 (Version None)
Quarter: 2010Q2

REPORT INFORMATION
  Report Type: 
  Country: None (occurrence: None)
  Receive Date: 20100624
  Receipt Date: 20091130
  Transmission Date: 20101027
  Serious: Yes (Hospitalization)
  Sender: FDA-Public Use
  Company Number: IT-PFIZER INC-2009304332

PATIENT
  Age: 82 Year
  Sex: Male

DRUGS (1)
  1. UNASYN [Suspect]
     Indication: BRONCHOPNEUMONIA
     Dosage: 9 G,  DAILY
     Route: 042
     Dates: start: 20091030, end: 20091108

REACTIONS (1)
  - TOXIC SKIN ERUPTION [None]
